FAERS Safety Report 4333781-6 (Version None)
Quarter: 2004Q2

REPORT INFORMATION
  Report Type: 
  Country: None (occurrence: None)
  Receive Date: 20040402
  Receipt Date: 20040323
  Transmission Date: 20050107
  Serious: Yes (Hospitalization)
  Sender: FDA-Public Use
  Company Number: AT-JNJFOC-20040305507

PATIENT
  Age: 85 Year
  Sex: Female
  Weight: 48 kg

DRUGS (5)
  1. RISPERDAL [Suspect]
     Indication: DEMENTIA
     Dosage: 1 MG, 1 IN 1 DAY, ORAL
     Route: 048
     Dates: start: 20030501, end: 20030821
  2. COMBITHYREX FORTE (NOVTHYRAL) TABLETS [Concomitant]
  3. DOMINAL FORTE (PROTHIPENDYL HYDROCHLORIDE) TABLETS [Concomitant]
  4. RENITEC (ENALAPRIL MALEATE) TABLETS [Concomitant]
  5. SELOKEN RETARD (METOPROLOL SUCCINATE) TABLETS [Concomitant]

REACTIONS (6)
  - BLOOD CREATINE PHOSPHOKINASE INCREASED [None]
  - BLOOD OSMOLARITY DECREASED [None]
  - BLOOD POTASSIUM DECREASED [None]
  - DISORIENTATION [None]
  - HYPONATRAEMIA [None]
  - SOMNOLENCE [None]
